FAERS Safety Report 22278243 (Version 1)
Quarter: 2023Q2

REPORT INFORMATION
  Report Type: Spontaneous
  Country: US (occurrence: None)
  Receive Date: 20230502
  Receipt Date: 20230502
  Transmission Date: 20230722
  Serious: No
  Sender: FDA-Public Use
  Company Number: None

PATIENT
  Age: 62 Year
  Sex: Male

DRUGS (1)
  1. ABIRATERONE [Suspect]
     Active Substance: ABIRATERONE
     Indication: Prostate cancer
     Dosage: OTHER QUANTITY : 4 TABS;?FREQUENCY : DAILY;?
     Route: 048
     Dates: start: 20220509

REACTIONS (1)
  - Night sweats [None]

NARRATIVE: CASE EVENT DATE: 20230502
